FAERS Safety Report 15131760 (Version 2)
Quarter: 2018Q3

REPORT INFORMATION
  Report Type: Spontaneous
  Country: US (occurrence: US)
  Receive Date: 20180711
  Receipt Date: 20180723
  Transmission Date: 20181010
  Serious: Yes (Other)
  Sender: FDA-Public Use
  Company Number: US-ELI_LILLY_AND_COMPANY-US201807001505

PATIENT
  Sex: Female

DRUGS (1)
  1. VERZENIO [Suspect]
     Active Substance: ABEMACICLIB
     Indication: BREAST CANCER FEMALE
     Dosage: 150 MG, BID
     Route: 065
     Dates: start: 20180619

REACTIONS (9)
  - Asthenia [Unknown]
  - Decreased appetite [Unknown]
  - Weight decreased [Unknown]
  - Feeling abnormal [Unknown]
  - Diarrhoea [Unknown]
  - Asthma [Unknown]
  - Nausea [Unknown]
  - Oropharyngeal pain [Recovered/Resolved]
  - Decreased activity [Unknown]
